FAERS Safety Report 7530418-X (Version None)
Quarter: 2011Q2

REPORT INFORMATION
  Report Type: 
  Country: None (occurrence: None)
  Receive Date: 20110607
  Receipt Date: 20110531
  Transmission Date: 20111010
  Serious: Yes (Hospitalization)
  Sender: FDA-Public Use
  Company Number: FR-ALLERGAN-1106647US

PATIENT
  Age: 61 Year
  Sex: Female
  Weight: 63 kg

DRUGS (2)
  1. ANTIBIOTICS [Concomitant]
     Indication: URINARY TRACT INFECTION
  2. BOTOX [Suspect]
     Indication: HYPERTONIC BLADDER
     Dosage: UNK
     Dates: start: 20110513, end: 20110513

REACTIONS (6)
  - ASTHENIA [None]
  - TREMOR [None]
  - THERAPEUTIC RESPONSE DECREASED [None]
  - DIARRHOEA [None]
  - PYREXIA [None]
  - CHILLS [None]
